FAERS Safety Report 6531793-5 (Version None)
Quarter: 2010Q1

REPORT INFORMATION
  Report Type: 
  Country: None (occurrence: None)
  Receive Date: 20100108
  Receipt Date: 20100105
  Transmission Date: 20100710
  Serious: Yes (Hospitalization)
  Sender: FDA-Public Use
  Company Number: B0608227A

PATIENT
  Sex: Female

DRUGS (9)
  1. WELLBUTRIN SR [Suspect]
     Indication: DEPRESSION
     Dosage: 150MG PER DAY
     Route: 048
     Dates: start: 20031006
  2. VALIUM [Concomitant]
     Dates: start: 20031006, end: 20031220
  3. NORVASC [Concomitant]
     Dates: start: 20020727
  4. ADCAL [Concomitant]
     Dates: start: 20030920, end: 20031220
  5. TAGAMET [Concomitant]
     Dates: start: 20030920, end: 20031220
  6. TRIDOL [Concomitant]
     Dates: start: 20030920, end: 20031220
  7. ETHEOPHYL [Concomitant]
     Dates: start: 20020704, end: 20031220
  8. METHYLONE [Concomitant]
     Dates: start: 20030920, end: 20031220
  9. ACETAMINOPHEN [Concomitant]
     Dates: start: 20030920, end: 20031220

REACTIONS (1)
  - CHRONIC OBSTRUCTIVE PULMONARY DISEASE [None]
